FAERS Safety Report 4294098-1 (Version None)
Quarter: 2004Q1

REPORT INFORMATION
  Report Type: 
  Country: None (occurrence: None)
  Receive Date: 20040212
  Receipt Date: 20040212
  Transmission Date: 20041129
  Serious: Yes (Hospitalization)
  Sender: FDA-Public Use
  Company Number: None

PATIENT
  Sex: Male
  Weight: 65 kg

DRUGS (7)
  1. ASPIRIN [Suspect]
     Indication: ARTHRALGIA
     Dosage: 1300 - 900MG 3 DAILY ORAL
     Route: 048
     Dates: start: 20031222, end: 20040203
  2. IBUPROFEN [Suspect]
     Indication: TOOTHACHE
     Dosage: 800 MG TID PRN ORAL
     Route: 048
     Dates: start: 20040128, end: 20040203
  3. IBUPROFEN [Concomitant]
  4. CITALOPRAM HYDROBROMIDE [Concomitant]
  5. MULTIVITAMIN/MINERALS THERAPEUTIC [Concomitant]
  6. NICOTINE [Concomitant]
  7. HYDROCHLOROTHIAZIDE [Concomitant]

REACTIONS (7)
  - ASTHENIA [None]
  - DIZZINESS [None]
  - FAECES DISCOLOURED [None]
  - GASTROINTESTINAL HAEMORRHAGE [None]
  - MELAENA [None]
  - SELF-MEDICATION [None]
  - TOOTHACHE [None]
